FAERS Safety Report 5412211-7 (Version None)
Quarter: 2007Q3

REPORT INFORMATION
  Report Type: 
  Country: None (occurrence: None)
  Receive Date: 20070810
  Receipt Date: 20070810
  Transmission Date: 20080115
  Serious: Yes (Death, Hospitalization)
  Sender: FDA-Public Use
  Company Number: None

PATIENT
  Age: 84 Year
  Sex: Male
  Weight: 65.1 kg

DRUGS (4)
  1. CIPROFLOXACIN [Suspect]
     Indication: URINARY TRACT INFECTION
     Dosage: 200MG BID IV
     Route: 042
     Dates: start: 20070607, end: 20070711
  2. MOXIFLOXACIN HCL [Suspect]
     Indication: PNEUMONIA
     Dosage: 400MG EVERY DAY PO
     Route: 048
     Dates: start: 20070515, end: 20070525
  3. METOPROLOL SUCCINATE [Concomitant]
  4. DILANTIN [Concomitant]

REACTIONS (5)
  - CLOSTRIDIUM DIFFICILE COLITIS [None]
  - CONDITION AGGRAVATED [None]
  - HYPOTENSION [None]
  - MEGACOLON [None]
  - SEPSIS [None]
